FAERS Safety Report 4589731-0 (Version None)
Quarter: 2005Q1

REPORT INFORMATION
  Report Type: 
  Country: None (occurrence: None)
  Receive Date: 20050217
  Receipt Date: 20050204
  Transmission Date: 20050727
  Serious: Yes (Hospitalization)
  Sender: FDA-Public Use
  Company Number: 2004100451

PATIENT
  Age: 67 Year
  Sex: Male

DRUGS (3)
  1. VIAGRA [Suspect]
     Indication: ERECTILE DYSFUNCTION
     Dosage: (50 MG, AS NECESSARY), ORAL
     Route: 048
     Dates: start: 20010101, end: 20040701
  2. DIOVAN HCT [Concomitant]
  3. LEVOTHYROXINE SODIUM [Concomitant]

REACTIONS (5)
  - CEREBROVASCULAR ACCIDENT [None]
  - ENCEPHALOPATHY [None]
  - GLOBAL AMNESIA [None]
  - MICROANGIOPATHY [None]
  - VASCULAR ENCEPHALOPATHY [None]
